FAERS Safety Report 13917442 (Version 9)
Quarter: 2024Q4

REPORT INFORMATION
  Report Type: Spontaneous
  Country: SE (occurrence: SE)
  Receive Date: 20170829
  Receipt Date: 20241028
  Transmission Date: 20250115
  Serious: Yes (Hospitalization, Other)
  Sender: MYLAN
  Company Number: SE-PFIZER INC-2017342276

PATIENT
  Age: 32 Year
  Sex: Female

DRUGS (13)
  1. LYRICA [Suspect]
     Active Substance: PREGABALIN
     Indication: Depression
     Dosage: UNK
     Route: 065
  2. LYRICA [Suspect]
     Active Substance: PREGABALIN
     Indication: Mental disorder
  3. LYRICA [Suspect]
     Active Substance: PREGABALIN
     Indication: Bipolar disorder
  4. VENLAFAXINE HYDROCHLORIDE [Suspect]
     Active Substance: VENLAFAXINE HYDROCHLORIDE
     Indication: Depression
     Dosage: UNK
     Route: 065
  5. VENLAFAXINE HYDROCHLORIDE [Suspect]
     Active Substance: VENLAFAXINE HYDROCHLORIDE
     Indication: Mental disorder
  6. VENLAFAXINE HYDROCHLORIDE [Suspect]
     Active Substance: VENLAFAXINE HYDROCHLORIDE
     Indication: Bipolar disorder
  7. VENLAFAXINE HYDROCHLORIDE [Suspect]
     Active Substance: VENLAFAXINE HYDROCHLORIDE
     Indication: Anxiety
  8. ZOLOFT [Suspect]
     Active Substance: SERTRALINE HYDROCHLORIDE
     Indication: Product used for unknown indication
     Dosage: UNK
     Route: 065
  9. IMOVANE [Suspect]
     Active Substance: ZOPICLONE
     Indication: Product used for unknown indication
     Dosage: 2.5 MG, 1X/DAY (EVERY EVENING) REGIMEN DOSE UNIT: MILLIGRAM
     Route: 065
     Dates: start: 2009
  10. SERTRALINE [Suspect]
     Active Substance: SERTRALINE HYDROCHLORIDE
     Indication: Depression
     Dosage: UNK
     Route: 065
     Dates: start: 2000
  11. RITALIN [Suspect]
     Active Substance: METHYLPHENIDATE HYDROCHLORIDE
     Indication: Product used for unknown indication
     Dosage: 140 MG, UNK
     Route: 065
     Dates: start: 2009
  12. QUETIAPINE [Suspect]
     Active Substance: QUETIAPINE
     Indication: Product used for unknown indication
     Dosage: UNK
     Route: 065
  13. ATARAX [Suspect]
     Active Substance: HYDROXYZINE HYDROCHLORIDE
     Indication: Product used for unknown indication
     Dosage: UNK
     Route: 065

REACTIONS (29)
  - Malaise [Unknown]
  - Gastrointestinal disorder [Not Recovered/Not Resolved]
  - Renal disorder [Unknown]
  - Eating disorder [Not Recovered/Not Resolved]
  - Condition aggravated [Not Recovered/Not Resolved]
  - Nausea [Recovered/Resolved]
  - Burnout syndrome [Unknown]
  - Pelvic inflammatory disease [Not Recovered/Not Resolved]
  - Drug ineffective for unapproved indication [Unknown]
  - Diplopia [Unknown]
  - Somnambulism [Recovered/Resolved]
  - Negative thoughts [Recovered/Resolved]
  - Libido decreased [Not Recovered/Not Resolved]
  - Emotional distress [Unknown]
  - Tinnitus [Not Recovered/Not Resolved]
  - Dysuria [Not Recovered/Not Resolved]
  - Social anxiety disorder [Not Recovered/Not Resolved]
  - Pain [Not Recovered/Not Resolved]
  - Arthralgia [Not Recovered/Not Resolved]
  - Pain in extremity [Not Recovered/Not Resolved]
  - Back pain [Not Recovered/Not Resolved]
  - Panic attack [Not Recovered/Not Resolved]
  - Nightmare [Unknown]
  - Cardiac disorder [Unknown]
  - Weight decreased [Unknown]
  - Rash [Unknown]
  - Tremor [Unknown]
  - Psychiatric symptom [Unknown]
  - Fear [Unknown]

NARRATIVE: CASE EVENT DATE: 20000101
